FAERS Safety Report 21671274 (Version 4)
Quarter: 2023Q1

REPORT INFORMATION
  Report Type: Spontaneous
  Country: GB (occurrence: GB)
  Receive Date: 20221202
  Receipt Date: 20230330
  Transmission Date: 20230418
  Serious: Yes (Death, Other)
  Sender: FDA-Public Use
  Company Number: US-BAYER-2022P024156

PATIENT

DRUGS (1)
  1. EYLEA [Suspect]
     Active Substance: AFLIBERCEPT
     Indication: Product used for unknown indication
     Dosage: UNK, SOLUTION FOR INJECTION, STRENGTH: 40 MG/ML
     Dates: start: 20221119, end: 20221119

REACTIONS (5)
  - Diabetes mellitus [Fatal]
  - Brain contusion [Fatal]
  - Skull fracture [Fatal]
  - Pulmonary embolism [Fatal]
  - Acute kidney injury [Fatal]

NARRATIVE: CASE EVENT DATE: 20221120
